FAERS Safety Report 5824944-9 (Version None)
Quarter: 2008Q3

REPORT INFORMATION
  Report Type: 
  Country: None (occurrence: None)
  Receive Date: 20080728
  Receipt Date: 20080716
  Transmission Date: 20090109
  Serious: Yes (Other)
  Sender: FDA-Public Use
  Company Number: GR-PFIZER INC-2008049473

PATIENT
  Age: 72 Year
  Sex: Female

DRUGS (2)
  1. SUTENT [Suspect]
     Indication: RENAL CELL CARCINOMA
  2. NEURONTIN [Concomitant]

REACTIONS (1)
  - POLYNEUROPATHY [None]
